FAERS Safety Report 6486492-5 (Version None)
Quarter: 2009Q4

REPORT INFORMATION
  Report Type: 
  Country: None (occurrence: None)
  Receive Date: 20091210
  Receipt Date: 20091204
  Transmission Date: 20100525
  Serious: Yes (Other)
  Sender: FDA-Public Use
  Company Number: CN-JNJFOC-20091008239

PATIENT
  Age: 28 Year
  Sex: Female

DRUGS (1)
  1. ITRIZOLE [Suspect]
     Indication: ONYCHOMYCOSIS
     Route: 048
     Dates: start: 20091023, end: 20091029

REACTIONS (4)
  - COUGH [None]
  - DIZZINESS [None]
  - HALLUCINATION [None]
  - INTENTIONAL DRUG MISUSE [None]
